FAERS Safety Report 19817084 (Version 1)
Quarter: 2021Q3

REPORT INFORMATION
  Report Type: Other
  Country: AU (occurrence: AU)
  Receive Date: 20210910
  Receipt Date: 20210910
  Transmission Date: 20211014
  Serious: Yes (Other)
  Sender: FDA-Public Use
  Company Number: AU-B.BRAUN MEDICAL INC.-2118255

PATIENT
  Age: 41 Year
  Sex: Male

DRUGS (1)
  1. CEFEPIME HYDROCHLORIDE AND DEXTROSE [Suspect]
     Active Substance: CEFEPIME HYDROCHLORIDE
     Indication: ARTHRITIS BACTERIAL

REACTIONS (1)
  - Drug reaction with eosinophilia and systemic symptoms [Unknown]
